FAERS Safety Report 11794854 (Version 4)
Quarter: 2016Q4

REPORT INFORMATION
  Report Type: Spontaneous
  Country: US (occurrence: US)
  Receive Date: 20151202
  Receipt Date: 20161107
  Transmission Date: 20170206
  Serious: Yes (Other)
  Sender: FDA-Public Use
  Company Number: US-BAYER-2015-474209

PATIENT
  Age: 31 Year
  Sex: Female

DRUGS (1)
  1. MIRENA [Suspect]
     Active Substance: LEVONORGESTREL
     Indication: CONTRACEPTION
     Dosage: 20 MCG/24HR, CONT
     Route: 015
     Dates: start: 20140616, end: 20151117

REACTIONS (10)
  - Abdominal discomfort [None]
  - Ectopic pregnancy with contraceptive device [None]
  - Human chorionic gonadotropin abnormal [None]
  - Emotional distress [None]
  - Peritoneal haemorrhage [None]
  - Pain [None]
  - Vaginal haemorrhage [None]
  - Ovarian cyst [None]
  - Drug ineffective [None]
  - Abdominal pain lower [None]

NARRATIVE: CASE EVENT DATE: 20151115
